FAERS Safety Report 5975701-4 (Version None)
Quarter: 2008Q4

REPORT INFORMATION
  Report Type: 
  Country: None (occurrence: None)
  Receive Date: 20081202
  Receipt Date: 20081127
  Transmission Date: 20090506
  Serious: Yes (Death, Other)
  Sender: FDA-Public Use
  Company Number: PHBS2008IT06475

PATIENT
  Age: 28 Year
  Sex: Female

DRUGS (9)
  1. CYCLOSPORINE [Suspect]
     Indication: CORD BLOOD TRANSPLANT THERAPY
  2. CYCLOSPORINE [Suspect]
     Indication: PROPHYLAXIS AGAINST GRAFT VERSUS HOST DISEASE
  3. MYCOPHENOLATE MOFETIL [Suspect]
     Indication: CORD BLOOD TRANSPLANT THERAPY
  4. MYCOPHENOLATE MOFETIL [Suspect]
     Indication: PROPHYLAXIS AGAINST GRAFT VERSUS HOST DISEASE
  5. GANCICLOVIR [Concomitant]
     Indication: PROPHYLAXIS
  6. ACYCLOVIR [Concomitant]
     Indication: PROPHYLAXIS
  7. IRRADIATION [Concomitant]
     Indication: CORD BLOOD TRANSPLANT THERAPY
     Dosage: 1320 CGY
  8. CYCLOPHOSPHAMIDE [Concomitant]
     Indication: CORD BLOOD TRANSPLANT THERAPY
  9. FLUDARABINE PHOSPHATE [Concomitant]
     Indication: CORD BLOOD TRANSPLANT THERAPY

REACTIONS (9)
  - ACUTE GRAFT VERSUS HOST DISEASE IN SKIN [None]
  - CONFUSIONAL STATE [None]
  - ENCEPHALITIS VIRAL [None]
  - GRAND MAL CONVULSION [None]
  - HUMAN HERPESVIRUS 6 INFECTION [None]
  - HYPONATRAEMIA [None]
  - INAPPROPRIATE ANTIDIURETIC HORMONE SECRETION [None]
  - LEUKAEMIA RECURRENT [None]
  - VISION BLURRED [None]
